FAERS Safety Report 20952798 (Version 1)
Quarter: 2022Q2

REPORT INFORMATION
  Report Type: Report from Study
  Country: IT (occurrence: IT)
  Receive Date: 20220613
  Receipt Date: 20220613
  Transmission Date: 20220721
  Serious: Yes (Other)
  Sender: FDA-Public Use
  Company Number: IT-AMGEN-ITANI2017099289

PATIENT
  Age: 64 Year
  Sex: Male
  Weight: 81 kg

DRUGS (4)
  1. PANITUMUMAB [Suspect]
     Active Substance: PANITUMUMAB
     Indication: Colorectal cancer metastatic
     Dosage: 486 MILLIGRAM, CYCLICAL
     Route: 042
     Dates: start: 20160601, end: 20170802
  2. PANITUMUMAB [Suspect]
     Active Substance: PANITUMUMAB
     Indication: Colon cancer
     Dosage: 486 MG, Q2WK
     Route: 042
     Dates: start: 20170531
  3. PANITUMUMAB [Suspect]
     Active Substance: PANITUMUMAB
     Dosage: 486 MILLIGRAM, CYCLICAL
     Route: 042
     Dates: start: 20160601, end: 20170802
  4. FLUOROURACIL\LEUCOVORIN CALCIUM\OXALIPLATIN [Suspect]
     Active Substance: FLUOROURACIL\LEUCOVORIN CALCIUM\OXALIPLATIN
     Indication: Colorectal cancer metastatic
     Dosage: 4800 DOSAGE FORM, Q2WK
     Route: 042
     Dates: start: 20160601

REACTIONS (19)
  - Neutropenia [Recovered/Resolved]
  - Thrombocytopenia [Recovered/Resolved]
  - Neutropenia [Unknown]
  - Skin hyperpigmentation [Recovered/Resolved]
  - Venous thrombosis [Not Recovered/Not Resolved]
  - Hot flush [Recovered/Resolved]
  - Anaemia [Recovered/Resolved]
  - Dermatitis acneiform [Not Recovered/Not Resolved]
  - Skin toxicity [Recovered/Resolved]
  - Paraesthesia [Not Recovered/Not Resolved]
  - Constipation [Recovered/Resolved]
  - Nausea [Recovered/Resolved]
  - Alopecia [Recovered/Resolved]
  - Vomiting [Recovered/Resolved]
  - Decreased appetite [Recovered/Resolved]
  - Asthenia [Recovered/Resolved]
  - Skin toxicity [Recovered/Resolved]
  - Dermatitis acneiform [Recovered/Resolved]
  - Anal haemorrhage [Recovered/Resolved]

NARRATIVE: CASE EVENT DATE: 20160601
